FAERS Safety Report 14385054 (Version 5)
Quarter: 2018Q1

REPORT INFORMATION
  Report Type: Spontaneous
  Country: FR (occurrence: FR)
  Receive Date: 20180115
  Receipt Date: 20180115
  Transmission Date: 20180509
  Serious: Yes (Hospitalization, Disabling)
  Sender: FDA-Public Use
  Company Number: FR-CONCORDIA PHARMACEUTICALS INC.-E2B_00009487

PATIENT
  Age: 36 Year
  Sex: Male

DRUGS (3)
  1. LIDOCAINE. [Concomitant]
     Active Substance: LIDOCAINE
  2. IOPAMIRON [Concomitant]
     Active Substance: IOPAMIDOL
     Dosage: STRENGTH: 300MG OF IODINE/ML?ROUTE: IDI; IN TOTAL
     Dates: start: 20170627, end: 20170627
  3. PREDNISOLONE. [Suspect]
     Active Substance: PREDNISOLONE
     Indication: BACK PAIN
     Dosage: ROUTE: IDI; IN TOTAL
     Dates: start: 20170627, end: 20170627

REACTIONS (5)
  - Motor dysfunction [Not Recovered/Not Resolved]
  - Paraplegia [Not Recovered/Not Resolved]
  - Bladder dysfunction [Not Recovered/Not Resolved]
  - Burning sensation [Not Recovered/Not Resolved]
  - Sensory loss [Not Recovered/Not Resolved]

NARRATIVE: CASE EVENT DATE: 20170627
